FAERS Safety Report 9287380 (Version 1)
Quarter: 2013Q2

REPORT INFORMATION
  Report Type: Spontaneous
  Country: DE (occurrence: DE)
  Receive Date: 20130514
  Receipt Date: 20130514
  Transmission Date: 20140414
  Serious: Yes (Hospitalization, Other)
  Sender: FDA-Public Use
  Company Number: DE-009507513-1009DEU00099

PATIENT
  Age: 73 Year
  Sex: Female

DRUGS (1)
  1. INEGY [Suspect]
     Indication: HYPERCHOLESTEROLAEMIA
     Dosage: STRENGTH: 10 MG/20 MG
     Route: 048
     Dates: start: 20081111, end: 20090112

REACTIONS (8)
  - Myalgia [Not Recovered/Not Resolved]
  - Muscle spasms [Not Recovered/Not Resolved]
  - Asthenia [Not Recovered/Not Resolved]
  - Paralysis [Not Recovered/Not Resolved]
  - Insomnia [Not Recovered/Not Resolved]
  - Tension [Not Recovered/Not Resolved]
  - Dysstasia [Not Recovered/Not Resolved]
  - Abasia [Not Recovered/Not Resolved]
